FAERS Safety Report 6074133-0 (Version None)
Quarter: 2009Q1

REPORT INFORMATION
  Report Type: 
  Country: None (occurrence: None)
  Receive Date: 20090211
  Receipt Date: 20090206
  Transmission Date: 20090719
  Serious: Yes (Other)
  Sender: FDA-Public Use
  Company Number: B0558589A

PATIENT
  Age: 38 Year
  Sex: Female

DRUGS (4)
  1. LAMICTAL [Suspect]
     Indication: NEUROPATHY PERIPHERAL
     Route: 065
     Dates: start: 20081110, end: 20090127
  2. LEVOZIN [Concomitant]
     Dosage: 15MG AT NIGHT
  3. PROPRAL [Concomitant]
     Dosage: 10MG AS REQUIRED
  4. OPAMOX [Concomitant]
     Indication: INSOMNIA
     Dosage: 15MG AT NIGHT

REACTIONS (9)
  - ABNORMAL BEHAVIOUR [None]
  - ENERGY INCREASED [None]
  - GRANDIOSITY [None]
  - HYPOMANIA [None]
  - INSOMNIA [None]
  - MOOD ALTERED [None]
  - NERVOUSNESS [None]
  - PARAESTHESIA [None]
  - SEROTONIN SYNDROME [None]
